FAERS Safety Report 16217291 (Version 2)
Quarter: 2019Q3

REPORT INFORMATION
  Report Type: Spontaneous
  Country: CN (occurrence: CN)
  Receive Date: 20190419
  Receipt Date: 20190801
  Transmission Date: 20191004
  Serious: Yes (Hospitalization)
  Sender: FDA-Public Use
  Company Number: CN-STRIDES ARCOLAB LIMITED-2019SP003253

PATIENT
  Age: 30 Year
  Sex: Female
  Weight: 65 kg

DRUGS (4)
  1. VANCOMYCIN [Suspect]
     Active Substance: VANCOMYCIN
     Dosage: UNK (ADJUSTED ACCORDING TO THE BLOOD CONCENTRATION LEVEL)
     Route: 042
     Dates: start: 2019, end: 201905
  2. VANCOMYCIN [Suspect]
     Active Substance: VANCOMYCIN
     Indication: INFECTION PROPHYLAXIS
     Dosage: 1 G, ON DAY 3
     Route: 042
     Dates: start: 20190429
  3. VANCOMYCIN [Suspect]
     Active Substance: VANCOMYCIN
     Dosage: 1 G/DOSING OVER TWO HOURS ONCE EVERY 12H ON DAY 7-19
     Route: 042
     Dates: start: 2019
  4. VANCOMYCIN [Suspect]
     Active Substance: VANCOMYCIN
     Dosage: 0.5 G, EVERY 8 HRS FROM DAY 3-6
     Route: 042
     Dates: start: 20190429

REACTIONS (1)
  - Coagulopathy [Unknown]

NARRATIVE: CASE EVENT DATE: 201905
